FAERS Safety Report 6349916-X (Version None)
Quarter: 2009Q3

REPORT INFORMATION
  Report Type: 
  Country: None (occurrence: None)
  Receive Date: 20090911
  Receipt Date: 20090622
  Transmission Date: 20100115
  Serious: No
  Sender: FDA-Public Use
  Company Number: US-ABBOTT-06P-163-0345515-00

PATIENT
  Sex: Male

DRUGS (13)
  1. HUMIRA [Suspect]
     Indication: RHEUMATOID ARTHRITIS
     Route: 058
     Dates: start: 20060701, end: 20060901
  2. HUMIRA [Suspect]
     Route: 058
     Dates: start: 20060901
  3. GLUCOPHAGE [Concomitant]
     Indication: DIABETES MELLITUS
     Route: 048
  4. ATENOLOL [Concomitant]
     Indication: DRUG USE FOR UNKNOWN INDICATION
  5. SULFASALAZINE [Concomitant]
     Indication: DRUG USE FOR UNKNOWN INDICATION
  6. CELECOXIB [Concomitant]
     Indication: DRUG USE FOR UNKNOWN INDICATION
  7. HYDROXYCHLOROQUINE SULFATE [Concomitant]
     Indication: DRUG USE FOR UNKNOWN INDICATION
  8. CLOPIDOGREL BISULFATE [Concomitant]
     Indication: DRUG USE FOR UNKNOWN INDICATION
  9. PRAVASTATIN SODIUM [Concomitant]
     Indication: DRUG USE FOR UNKNOWN INDICATION
  10. LOTREL [Concomitant]
     Indication: RENAL DISORDER
     Dosage: 10/20MG
  11. OMEPRAZOLE [Concomitant]
     Indication: DRUG USE FOR UNKNOWN INDICATION
  12. BAYER ASA [Concomitant]
     Indication: DRUG USE FOR UNKNOWN INDICATION
  13. MULTI-VITAMINS [Concomitant]
     Indication: DRUG USE FOR UNKNOWN INDICATION

REACTIONS (1)
  - INCORRECT DOSE ADMINISTERED [None]
